FAERS Safety Report 9155007 (Version 1)
Quarter: 2013Q1

REPORT INFORMATION
  Report Type: Spontaneous
  Country: SI (occurrence: SI)
  Receive Date: 20130311
  Receipt Date: 20130311
  Transmission Date: 20140127
  Serious: Yes (Other)
  Sender: FDA-Public Use
  Company Number: SI-ROCHE-1199371

PATIENT
  Age: 80 Year
  Sex: Female

DRUGS (4)
  1. RIVOTRIL [Suspect]
     Indication: PSYCHIATRIC SYMPTOM
     Dosage: ON 14 FEB 2013, 2X2 MG WAS ADMINISTERED BY ACCIDENT
     Route: 048
     Dates: end: 20130214
  2. ZYPREXA [Concomitant]
     Dosage: IN THE MORNINGS
     Route: 065
  3. AKINETON [Concomitant]
     Route: 065
  4. CLOPIXOL DEPOT [Concomitant]
     Route: 065
     Dates: end: 20130211

REACTIONS (5)
  - Accidental overdose [Unknown]
  - Medication error [Unknown]
  - Respiratory depression [Recovered/Resolved]
  - Respiratory failure [Recovered/Resolved]
  - Somnolence [Recovered/Resolved]
